FAERS Safety Report 12403533 (Version 1)
Quarter: 2016Q2

REPORT INFORMATION
  Report Type: Spontaneous
  Country: GR (occurrence: GR)
  Receive Date: 20160525
  Receipt Date: 20160525
  Transmission Date: 20160815
  Serious: Yes (Other)
  Sender: FDA-Public Use
  Company Number: PHHY2011GR22052

PATIENT
  Age: 71 Year
  Sex: Male
  Weight: 77 kg

DRUGS (2)
  1. LESCOL XL [Suspect]
     Active Substance: FLUVASTATIN SODIUM
     Indication: HYPERLIPIDAEMIA
     Dosage: 1 DF, QD
     Route: 048
     Dates: start: 2004, end: 2011
  2. EZETROL [Concomitant]
     Active Substance: EZETIMIBE
     Indication: PRODUCT USED FOR UNKNOWN INDICATION
     Route: 065

REACTIONS (11)
  - Breast cyst [Unknown]
  - Asthenia [Unknown]
  - Immune system disorder [Unknown]
  - Negativism [Unknown]
  - Infection [Unknown]
  - Gynaecomastia [Not Recovered/Not Resolved]
  - Leukopenia [Not Recovered/Not Resolved]
  - Libido decreased [Unknown]
  - Anhedonia [Unknown]
  - Erectile dysfunction [Not Recovered/Not Resolved]
  - Major depression [Unknown]

NARRATIVE: CASE EVENT DATE: 2007
